FAERS Safety Report 12532669 (Version 1)
Quarter: 2016Q3

REPORT INFORMATION
  Report Type: Spontaneous
  Country: US (occurrence: US)
  Receive Date: 20160706
  Receipt Date: 20160706
  Transmission Date: 20161109
  Serious: No
  Sender: FDA-Public Use
  Company Number: US-PURDUE-USA-2015-0125397

PATIENT
  Sex: Male

DRUGS (3)
  1. BUTRANS [Suspect]
     Active Substance: BUPRENORPHINE
     Dosage: 5 MCG/HR, WEEKLY
     Route: 062
     Dates: start: 201505, end: 201505
  2. BUTRANS [Suspect]
     Active Substance: BUPRENORPHINE
     Indication: PAIN
     Dosage: 15 MCG/HR, WEEKLY
     Route: 062
     Dates: start: 201507
  3. BUTRANS [Suspect]
     Active Substance: BUPRENORPHINE
     Indication: PAIN
     Dosage: 10 MCG/HR, WEEKLY
     Route: 062
     Dates: start: 201506, end: 201506

REACTIONS (11)
  - Feeling abnormal [Unknown]
  - Depressed mood [Unknown]
  - Emotional disorder [Unknown]
  - Insomnia [Unknown]
  - Pain [Unknown]
  - Drug ineffective [Unknown]
  - Drug effect decreased [Unknown]
  - Chills [Unknown]
  - Drug withdrawal syndrome [Unknown]
  - Headache [Unknown]
  - Anxiety [Unknown]

NARRATIVE: CASE EVENT DATE: 201505
